FAERS Safety Report 12823708 (Version 1)
Quarter: 2016Q4

REPORT INFORMATION
  Report Type: Spontaneous
  Country: FR (occurrence: FR)
  Receive Date: 20161006
  Receipt Date: 20161006
  Transmission Date: 20170207
  Serious: Yes (Hospitalization)
  Sender: FDA-Public Use
  Company Number: FR-PFIZER INC-2016454996

PATIENT
  Age: 22 Year
  Sex: Female

DRUGS (4)
  1. XANAX [Suspect]
     Active Substance: ALPRAZOLAM
  2. ZOLPIDEM [Suspect]
     Active Substance: ZOLPIDEM\ZOLPIDEM TARTRATE
     Dosage: BETWEEN 2 AND 5 DF IN THE EVENING, UP TO 8 DF PER DAY
  3. XANAX [Suspect]
     Active Substance: ALPRAZOLAM
     Dosage: 2 DF OF 0.5, 2X/DAY IN THE MORNING AND IN THE EVENING
  4. LYSANXIA [Suspect]
     Active Substance: PRAZEPAM
     Dosage: 1 DF, 1X/DAY UP TO 2 TIMES PER DAY

REACTIONS (4)
  - Drug dependence [Recovering/Resolving]
  - Drug abuser [Recovered/Resolved]
  - Emotional disorder [Unknown]
  - Withdrawal syndrome [Unknown]
